FAERS Safety Report 8991317 (Version 2)
Quarter: 2013Q3

REPORT INFORMATION
  Report Type: Spontaneous
  Country: GB (occurrence: GB)
  Receive Date: 20121231
  Receipt Date: 20130927
  Transmission Date: 20140515
  Serious: Yes (Other)
  Sender: FDA-Public Use
  Company Number: GB-009507513-1212GBR011120

PATIENT
  Age: 71 Year
  Sex: Female

DRUGS (5)
  1. ALENDRONATE SODIUM [Suspect]
     Indication: OSTEOPOROSIS
     Route: 048
  2. ADCAL (CALCIUM CARBONATE) [Concomitant]
  3. OMEPRAZOLE [Concomitant]
  4. STATIN (UNSPECIFIED) [Concomitant]
  5. STRONTIUM RANELATE [Concomitant]

REACTIONS (3)
  - Bone loss [Unknown]
  - Oroantral fistula [Unknown]
  - Osteonecrosis of jaw [Not Recovered/Not Resolved]
